FAERS Safety Report 6905390-3 (Version None)
Quarter: 2010Q3

REPORT INFORMATION
  Report Type: 
  Country: None (occurrence: None)
  Receive Date: 20100804
  Receipt Date: 20100727
  Transmission Date: 20110219
  Serious: Yes (Hospitalization, Other)
  Sender: FDA-Public Use
  Company Number: ES-SANOFI-AVENTIS-2010SA044105

PATIENT
  Sex: Female

DRUGS (1)
  1. LEFLUNOMIDE [Suspect]

REACTIONS (2)
  - ANAEMIA [None]
  - APLASIA PURE RED CELL [None]
